FAERS Safety Report 24076165 (Version 1)
Quarter: 2024Q3

REPORT INFORMATION
  Report Type: Spontaneous
  Country: US (occurrence: US)
  Receive Date: 20240710
  Receipt Date: 20240710
  Transmission Date: 20241016
  Serious: No
  Sender: ROCHE
  Company Number: US-ROCHE-10000020658

PATIENT
  Sex: Male

DRUGS (1)
  1. RITUXAN [Suspect]
     Active Substance: RITUXIMAB
     Indication: Ureteric obstruction
     Dosage: WEEK 0 AND 2 EVERY SIX MONTH
     Route: 042

REACTIONS (3)
  - Pain in jaw [Unknown]
  - Swelling [Unknown]
  - Off label use [Unknown]
